FAERS Safety Report 7020954-7 (Version None)
Quarter: 2010Q3

REPORT INFORMATION
  Report Type: 
  Country: None (occurrence: None)
  Receive Date: 20100929
  Receipt Date: 20090917
  Transmission Date: 20110219
  Serious: No
  Sender: FDA-Public Use
  Company Number: A0807861A

PATIENT
  Age: 11 Year
  Sex: Male

DRUGS (3)
  1. RELENZA [Suspect]
     Indication: INFLUENZA
     Dosage: 4BLS TWICE PER DAY
     Route: 055
     Dates: start: 20090820, end: 20090820
  2. VENTOLIN [Suspect]
     Indication: BRONCHOSPASM
     Dosage: 2PUFF THREE TIMES PER DAY
     Route: 055
     Dates: start: 20090820, end: 20090914
  3. ZITHROMAX [Suspect]
     Indication: INFLUENZA

REACTIONS (11)
  - CHEST PAIN [None]
  - CRYING [None]
  - DIZZINESS [None]
  - DYSKINESIA [None]
  - HEADACHE [None]
  - LIP SWELLING [None]
  - MUSCLE SPASMS [None]
  - PAIN [None]
  - PALPITATIONS [None]
  - TREMOR [None]
  - URTICARIA [None]
